FAERS Safety Report 6588119-0 (Version None)
Quarter: 2010Q1

REPORT INFORMATION
  Report Type: 
  Country: None (occurrence: None)
  Receive Date: 20100217
  Receipt Date: 20100217
  Transmission Date: 20100710
  Serious: Yes (Death, Hospitalization)
  Sender: FDA-Public Use
  Company Number: None

PATIENT
  Sex: Female
  Weight: 67.5 kg

DRUGS (3)
  1. CYTARABINE [Suspect]
     Dosage: 1260 MG
     Dates: end: 20100204
  2. DAUNORUBICIN HCL [Suspect]
     Dosage: 486 MG
     Dates: end: 20100130
  3. ETOPOSIDE [Suspect]
     Dosage: 540 MG
     Dates: end: 20100130

REACTIONS (2)
  - CEREBRAL HAEMORRHAGE [None]
  - REFRACTORINESS TO PLATELET TRANSFUSION [None]
